FAERS Safety Report 7354095-6 (Version None)
Quarter: 2011Q1

REPORT INFORMATION
  Report Type: 
  Country: None (occurrence: None)
  Receive Date: 20110315
  Receipt Date: 20110114
  Transmission Date: 20110831
  Serious: Yes (Hospitalization)
  Sender: FDA-Public Use
  Company Number: FR-MERCK-1009FRA00072

PATIENT
  Age: 65 Year
  Sex: Male

DRUGS (6)
  1. CEFTAZIDIME [Concomitant]
     Indication: URINARY TRACT INFECTION
     Route: 051
     Dates: start: 20100821, end: 20100903
  2. JANUVIA [Suspect]
     Indication: TYPE 2 DIABETES MELLITUS
     Route: 048
     Dates: start: 20100730, end: 20100916
  3. DARBEPOETIN ALFA [Concomitant]
     Route: 065
  4. FOLIC ACID [Concomitant]
     Route: 048
  5. GABAPENTIN [Concomitant]
     Route: 048
  6. GLIMEPIRIDE [Concomitant]
     Route: 048
     Dates: end: 20100902

REACTIONS (4)
  - OVERDOSE [None]
  - IGA NEPHROPATHY [None]
  - BLOOD CREATININE INCREASED [None]
  - PYURIA [None]
